FAERS Safety Report 8026241-2 (Version None)
Quarter: 2012Q1

REPORT INFORMATION
  Report Type: 
  Country: None (occurrence: None)
  Receive Date: 20120105
  Receipt Date: 20111031
  Transmission Date: 20120608
  Serious: No
  Sender: FDA-Public Use
  Company Number: US-ABBOTT-11P-163-0870550-00

PATIENT
  Sex: Female
  Weight: 72.64 kg

DRUGS (3)
  1. SYNTHROID [Suspect]
     Indication: HYPOTHYROIDISM
     Dates: start: 19600101
  2. NORTRIPTYLINE HCL [Concomitant]
     Indication: ANXIETY
  3. AMLODIPINE [Concomitant]
     Indication: HYPERTENSION

REACTIONS (3)
  - LETHARGY [None]
  - NERVOUSNESS [None]
  - BLOOD THYROID STIMULATING HORMONE INCREASED [None]
